FAERS Safety Report 16831746 (Version 1)
Quarter: 2019Q4

REPORT INFORMATION
  Report Type: Spontaneous
  Country: US (occurrence: US)
  Receive Date: 20190919
  Receipt Date: 20190919
  Transmission Date: 20200122
  Serious: Yes (Life-Threatening, Hospitalization, Disabling)
  Sender: FDA-Public Use
  Company Number: None

PATIENT
  Age: 57 Year
  Sex: Female
  Weight: 97.2 kg

DRUGS (2)
  1. CANTALOUPE\FOOD [Suspect]
     Active Substance: CANTALOUPE
     Indication: NUTRITIONAL SUPPLEMENTATION
     Dosage: ?          OTHER STRENGTH:1;QUANTITY:1 CANTALOUPE;?
     Route: 048
     Dates: start: 20190801, end: 20190805
  2. HUMAN IMMUNOGLBULIN (IMMUNOGLOBULIN HUMAN NORMAL) [Suspect]
     Active Substance: HUMAN IMMUNOGLOBULIN G
     Indication: IMMUNODEFICIENCY COMMON VARIABLE
     Dosage: ?          OTHER FREQUENCY:ONCE MONTHLY;?
     Route: 042
     Dates: start: 20160112, end: 20160323

REACTIONS (2)
  - Deep vein thrombosis [None]
  - Pulmonary embolism [None]

NARRATIVE: CASE EVENT DATE: 20160401
